FAERS Safety Report 23884331 (Version 1)
Quarter: 2024Q2

REPORT INFORMATION
  Report Type: Other
  Country: CN (occurrence: CN)
  Receive Date: 20240522
  Receipt Date: 20240522
  Transmission Date: 20240716
  Serious: Yes (Other)
  Sender: FDA-Public Use
  Company Number: CN-GE HEALTHCARE-2024CSU005171

PATIENT
  Age: 52 Year
  Sex: Male
  Weight: 65 kg

DRUGS (1)
  1. OMNIPAQUE [Suspect]
     Active Substance: IOHEXOL
     Indication: Angiogram cerebral
     Dosage: 100 ML, TOTAL
     Route: 041
     Dates: start: 20240313, end: 20240313

REACTIONS (7)
  - Vasogenic cerebral oedema [Recovered/Resolved]
  - Blood pressure fluctuation [Recovered/Resolved]
  - Hypoproteinaemia [Recovered/Resolved]
  - Contrast media allergy [Recovered/Resolved]
  - Head discomfort [Recovered/Resolved]
  - Oedema peripheral [Recovered/Resolved]
  - Face oedema [Recovered/Resolved]

NARRATIVE: CASE EVENT DATE: 20240314
